FAERS Safety Report 24582032 (Version 1)
Quarter: 2024Q4

REPORT INFORMATION
  Report Type: Spontaneous
  Country: IT (occurrence: IT)
  Receive Date: 20241105
  Receipt Date: 20241105
  Transmission Date: 20250114
  Serious: Yes (Other)
  Sender: SANDOZ
  Company Number: IT-002147023-NVSC2020IT153885

PATIENT
  Age: 49 Year
  Sex: Male
  Weight: 81.5 kg

DRUGS (18)
  1. CYCLOSPORINE [Suspect]
     Active Substance: CYCLOSPORINE
     Indication: Immunosuppressant drug therapy
     Dosage: 1 DF, QD
     Route: 065
  2. CYCLOSPORINE [Suspect]
     Active Substance: CYCLOSPORINE
     Indication: Liver transplant
     Dosage: 50 MG, BID (1 CP)
     Route: 065
  3. CYCLOSPORINE [Suspect]
     Active Substance: CYCLOSPORINE
     Indication: Prophylaxis against transplant rejection
  4. MYCOPHENOLATE MOFETIL [Suspect]
     Active Substance: MYCOPHENOLATE MOFETIL
     Indication: Immunosuppressant drug therapy
     Dosage: 1000 MG, QD
     Route: 065
  5. MYCOPHENOLATE MOFETIL [Suspect]
     Active Substance: MYCOPHENOLATE MOFETIL
     Indication: Liver transplant
     Dosage: 500 MG, BID (2 CP)
     Route: 065
  6. MYCOPHENOLATE MOFETIL [Suspect]
     Active Substance: MYCOPHENOLATE MOFETIL
     Indication: Prophylaxis against transplant rejection
  7. RIBAVIRIN [Suspect]
     Active Substance: RIBAVIRIN
     Indication: Hepatitis C
     Dosage: UNK
     Route: 065
     Dates: start: 201504
  8. RIBAVIRIN [Suspect]
     Active Substance: RIBAVIRIN
     Indication: Viral infection
     Dosage: FOR 6 MONTHS
     Route: 065
     Dates: start: 2012
  9. SIMEPREVIR [Suspect]
     Active Substance: SIMEPREVIR
     Indication: Antiviral treatment
     Dosage: UNK
     Route: 065
     Dates: start: 201504
  10. SIMEPREVIR [Suspect]
     Active Substance: SIMEPREVIR
     Indication: Viral infection
  11. SOFOSBUVIR [Suspect]
     Active Substance: SOFOSBUVIR
     Indication: Antiviral treatment
     Dosage: UNK
     Route: 065
  12. SOFOSBUVIR [Suspect]
     Active Substance: SOFOSBUVIR
     Indication: Viral infection
  13. ATENOLOL [Concomitant]
     Active Substance: ATENOLOL
     Indication: Product used for unknown indication
     Dosage: 50 MG, QD
     Route: 065
  14. HYDROCHLOROTHIAZIDE [Concomitant]
     Active Substance: HYDROCHLOROTHIAZIDE
     Indication: Product used for unknown indication
     Dosage: 12.5 MG, QD (2.5/12.5)
     Route: 065
  15. PANTOPRAZOLE [Concomitant]
     Active Substance: PANTOPRAZOLE
     Indication: Product used for unknown indication
     Dosage: 20 MG, QD
     Route: 065
  16. PEGYLATED INTERFERON ALPHA NOS [Concomitant]
     Active Substance: PEGINTERFERON ALFA-2A OR PEGINTERFERON ALFA-2B
     Indication: Hepatitis C
     Dosage: UNK
     Route: 065
     Dates: start: 2012
  17. RAMIPRIL [Concomitant]
     Active Substance: RAMIPRIL
     Indication: Product used for unknown indication
     Dosage: 12.5 MG, QD (2.5/12.5)
     Route: 065
  18. URSODIOL [Concomitant]
     Active Substance: URSODIOL
     Indication: Product used for unknown indication
     Dosage: 450 MG, QD
     Route: 065

REACTIONS (5)
  - Hepatocellular carcinoma [Recovered/Resolved]
  - Type 2 diabetes mellitus [Unknown]
  - Chronic kidney disease [Unknown]
  - Hepatitis C [Unknown]
  - Treatment failure [Unknown]

NARRATIVE: CASE EVENT DATE: 20081201
